FAERS Safety Report 15089115 (Version 1)
Quarter: 2018Q2

REPORT INFORMATION
  Report Type: Spontaneous
  Country: US (occurrence: US)
  Receive Date: 20180629
  Receipt Date: 20180629
  Transmission Date: 20180711
  Serious: No
  Sender: FDA-Public Use
  Company Number: US-SA-2018SA169575

PATIENT

DRUGS (1)
  1. KEVZARA [Suspect]
     Active Substance: SARILUMAB

REACTIONS (5)
  - Headache [Unknown]
  - Facial pain [Unknown]
  - Sinus disorder [Unknown]
  - Dizziness [Unknown]
  - Nasal congestion [Unknown]
